FAERS Safety Report 11952740 (Version 2)
Quarter: 2016Q1

REPORT INFORMATION
  Report Type: Report from Study
  Country: US (occurrence: US)
  Receive Date: 20160126
  Receipt Date: 20160126
  Transmission Date: 20160526
  Serious: Yes (Hospitalization)
  Sender: FDA-Public Use
  Company Number: US-ABBVIE-15K-163-1354658-00

PATIENT
  Age: 82 Year
  Sex: Male

DRUGS (1)
  1. HUMIRA [Suspect]
     Active Substance: ADALIMUMAB
     Indication: PSORIASIS
     Route: 065
     Dates: start: 20130531, end: 20141215

REACTIONS (2)
  - Loss of consciousness [Recovered/Resolved with Sequelae]
  - Encephalitis [Recovered/Resolved with Sequelae]

NARRATIVE: CASE EVENT DATE: 20150101
